FAERS Safety Report 9542599 (Version 2)
Quarter: 2013Q4

REPORT INFORMATION
  Report Type: Spontaneous
  Country: US (occurrence: US)
  Receive Date: 20130923
  Receipt Date: 20131120
  Transmission Date: 20140711
  Serious: Yes (Other)
  Sender: FDA-Public Use
  Company Number: US-PFIZER INC-2013268727

PATIENT
  Age: 60 Year
  Sex: Male

DRUGS (5)
  1. INLYTA [Suspect]
     Indication: RENAL CANCER
     Dosage: 7 MG, 2X/DAY (TAKE TWO 1MG AND ONE 5MG TABLETS)
     Dates: start: 20120808
  2. INLYTA [Suspect]
     Dosage: 14 MG, DAILY
     Dates: start: 20130819, end: 20130830
  3. DIOVAN (VALSARTAN) [Concomitant]
     Dosage: UNK
  4. HYDROCHLOROTHIAZIDE [Concomitant]
     Dosage: UNK
  5. NORVASC [Concomitant]
     Dosage: UNK

REACTIONS (4)
  - Hypotension [Unknown]
  - Renal impairment [Unknown]
  - Disease progression [Unknown]
  - Renal cancer [Unknown]
